FAERS Safety Report 4268403-6 (Version None)
Quarter: 2004Q1

REPORT INFORMATION
  Report Type: 
  Country: None (occurrence: None)
  Receive Date: 20040112
  Receipt Date: 20031121
  Transmission Date: 20041129
  Serious: Yes (Other)
  Sender: FDA-Public Use
  Company Number: 200322210GDDC

PATIENT
  Age: 35 Year
  Sex: Female
  Weight: 146 kg

DRUGS (4)
  1. CLEXANE [Suspect]
     Indication: ANGINA UNSTABLE
     Route: 058
     Dates: start: 20031108, end: 20031112
  2. CO-DYDRAMOL [Concomitant]
     Indication: PAIN IN EXTREMITY
     Route: 048
     Dates: start: 20031109, end: 20031112
  3. ASPIRIN [Concomitant]
     Indication: CHEST PAIN
     Route: 048
  4. GLYCERYL TRINITRATE [Concomitant]
     Dosage: DOSE: UNK
     Route: 060

REACTIONS (2)
  - CONTUSION [None]
  - SKIN NODULE [None]
